FAERS Safety Report 20112619 (Version 1)
Quarter: 2021Q4

REPORT INFORMATION
  Report Type: Spontaneous
  Country: US (occurrence: US)
  Receive Date: 20211125
  Receipt Date: 20211125
  Transmission Date: 20220303
  Serious: No
  Sender: FDA-Public Use
  Company Number: US-LUPIN PHARMACEUTICALS INC.-2021-22884

PATIENT
  Age: 51 Year
  Sex: Female

DRUGS (13)
  1. FLUOCINONIDE [Suspect]
     Active Substance: FLUOCINONIDE
     Indication: Alopecia
     Dosage: UNK-SOLUTION
     Route: 065
  2. LEVOTHYROXINE [Interacting]
     Active Substance: LEVOTHYROXINE
     Indication: Autoimmune thyroiditis
     Dosage: UNK
     Route: 065
  3. ANASTROZOLE [Interacting]
     Active Substance: ANASTROZOLE
     Indication: Intraductal proliferative breast lesion
     Dosage: UNK
     Route: 065
  4. ANASTROZOLE [Interacting]
     Active Substance: ANASTROZOLE
     Indication: Invasive papillary breast carcinoma
  5. CYCLOPHOSPHAMIDE [Interacting]
     Active Substance: CYCLOPHOSPHAMIDE
     Indication: Intraductal proliferative breast lesion
     Dosage: UNK, 6 CYCLES
     Route: 065
  6. CYCLOPHOSPHAMIDE [Interacting]
     Active Substance: CYCLOPHOSPHAMIDE
     Indication: Invasive papillary breast carcinoma
  7. METHOTREXATE [Interacting]
     Active Substance: METHOTREXATE
     Indication: Intraductal proliferative breast lesion
     Dosage: UNK
     Route: 065
  8. METHOTREXATE [Interacting]
     Active Substance: METHOTREXATE
     Indication: Invasive papillary breast carcinoma
  9. FLUOROURACIL [Interacting]
     Active Substance: FLUOROURACIL
     Indication: Intraductal proliferative breast lesion
     Dosage: UNK
     Route: 065
  10. FLUOROURACIL [Interacting]
     Active Substance: FLUOROURACIL
     Indication: Invasive papillary breast carcinoma
  11. DOCETAXEL [Interacting]
     Active Substance: DOCETAXEL
     Indication: Intraductal proliferative breast lesion
     Dosage: UNK
     Route: 065
  12. DOCETAXEL [Interacting]
     Active Substance: DOCETAXEL
     Indication: Invasive papillary breast carcinoma
  13. GABAPENTIN [Concomitant]
     Active Substance: GABAPENTIN
     Indication: Product used for unknown indication
     Dosage: UNK
     Route: 065

REACTIONS (3)
  - Alopecia [Not Recovered/Not Resolved]
  - Drug interaction [Unknown]
  - Skin burning sensation [Unknown]
